FAERS Safety Report 10231377 (Version 2)
Quarter: 2014Q2

REPORT INFORMATION
  Report Type: Spontaneous
  Country: ES (occurrence: ES)
  Receive Date: 20140611
  Receipt Date: 20140611
  Transmission Date: 20141212
  Serious: Yes (Other)
  Sender: FDA-Public Use
  Company Number: PHHY2014ES068280

PATIENT
  Age: 50 Year
  Sex: Female

DRUGS (3)
  1. PACLITAXEL [Suspect]
     Indication: INVASIVE DUCTAL BREAST CARCINOMA
     Dosage: 80 MG/M2, UNK
  2. ADRIAMYCIN [Concomitant]
     Indication: INVASIVE DUCTAL BREAST CARCINOMA
     Dosage: 60 MG/M2, UNK
  3. CYCLOPHOSPHAMIDE [Concomitant]
     Indication: INVASIVE DUCTAL BREAST CARCINOMA
     Dosage: 600 MG/M2, UNK

REACTIONS (10)
  - Onychomadesis [Unknown]
  - Staphylococcus test positive [Recovered/Resolved]
  - Paronychia [Recovered/Resolved]
  - Onycholysis [Recovered/Resolved]
  - Secretion discharge [Recovered/Resolved]
  - Pain in extremity [Recovered/Resolved]
  - Nail disorder [Recovered/Resolved]
  - Alopecia [Unknown]
  - Peripheral sensory neuropathy [Recovered/Resolved]
  - Skin lesion [Recovered/Resolved]
